FAERS Safety Report 4643322-1 (Version None)
Quarter: 2005Q2

REPORT INFORMATION
  Report Type: 
  Country: None (occurrence: None)
  Receive Date: 20050422
  Receipt Date: 20050408
  Transmission Date: 20051028
  Serious: Yes (Disabling)
  Sender: FDA-Public Use
  Company Number: 2005057578

PATIENT
  Age: 79 Year
  Sex: Female
  Weight: 79.3795 kg

DRUGS (3)
  1. BEXTRA [Suspect]
     Indication: OSTEOARTHRITIS
     Dosage: 20 MG (10 MG, 2 IN 1 D) ORAL
     Route: 048
     Dates: end: 20040101
  2. CELEBREX [Suspect]
     Indication: ILL-DEFINED DISORDER
  3. SINEMET [Concomitant]

REACTIONS (3)
  - CEREBROVASCULAR ACCIDENT [None]
  - DRUG EFFECT DECREASED [None]
  - TRANSIENT ISCHAEMIC ATTACK [None]
